FAERS Safety Report 20152465 (Version 1)
Quarter: 2021Q4

REPORT INFORMATION
  Report Type: Spontaneous
  Country: SK (occurrence: SK)
  Receive Date: 20211206
  Receipt Date: 20211206
  Transmission Date: 20220303
  Serious: Yes (Other)
  Sender: FDA-Public Use
  Company Number: SK-SA-SAC20211012001295

PATIENT
  Age: 66 Year
  Sex: Male
  Weight: 93 kg

DRUGS (21)
  1. GLIMEPIRIDE [Suspect]
     Active Substance: GLIMEPIRIDE
     Indication: Type 2 diabetes mellitus
     Dosage: 4 MILLIGRAM, QD (MORNING)
     Route: 065
     Dates: start: 200808
  2. GLIMEPIRIDE [Suspect]
     Active Substance: GLIMEPIRIDE
     Dosage: UNK, 4-0-2 MG
     Route: 065
     Dates: start: 200908
  3. INSULIN GLARGINE\LIXISENATIDE [Suspect]
     Active Substance: INSULIN GLARGINE\LIXISENATIDE
     Indication: Product used for unknown indication
     Dosage: 28 INTERNATIONAL UNIT, QD. IN THE MORNING 28 IU
     Route: 058
     Dates: start: 202104
  4. INSULIN GLARGINE\LIXISENATIDE [Suspect]
     Active Substance: INSULIN GLARGINE\LIXISENATIDE
     Dosage: 26 INTERNATIONAL UNIT, QD IN THE MORNING
     Route: 058
     Dates: start: 202012
  5. INSULIN GLARGINE\LIXISENATIDE [Suspect]
     Active Substance: INSULIN GLARGINE\LIXISENATIDE
     Dosage: 20 INTERNATIONAL UNIT, QD, 100 IU / 50 ?G BEFORE BREAKFAST 20 IU
     Route: 058
     Dates: start: 202008
  6. INSULIN LISPRO [Concomitant]
     Active Substance: INSULIN LISPRO
     Dosage: UNK, 0-6-0 IU
     Route: 058
     Dates: start: 201701
  7. INSULIN LISPRO [Concomitant]
     Active Substance: INSULIN LISPRO
     Dosage: 24 INTERNATIONAL UNIT
     Route: 058
  8. INSULIN LISPRO [Concomitant]
     Active Substance: INSULIN LISPRO
     Dosage: UNK, 0-7-0 IU
     Route: 058
     Dates: start: 201803
  9. INSULIN LISPRO [Concomitant]
     Active Substance: INSULIN LISPRO
     Dosage: 5 INTERNATIONAL UNIT
     Route: 058
     Dates: start: 200912
  10. INSULIN LISPRO [Concomitant]
     Active Substance: INSULIN LISPRO
     Dosage: UNK, 26-0-16 IU
     Route: 058
     Dates: start: 201504
  11. INSULIN LISPRO [Concomitant]
     Active Substance: INSULIN LISPRO
     Dosage: 4 INTERNATIONAL UNIT
     Route: 058
  12. INSULIN LISPRO [Concomitant]
     Active Substance: INSULIN LISPRO
     Dosage: 4 INTERNATIONAL UNIT, QD, AT LUNCH TIME AT THE DOSE OF 4 IU
     Route: 058
     Dates: start: 201602
  13. INSULIN LISPRO [Concomitant]
     Active Substance: INSULIN LISPRO
     Dosage: UNK, 20-0-8 IU TO 24-0-14 IU
     Route: 058
     Dates: start: 201401
  14. SIMVASTATIN [Concomitant]
     Active Substance: SIMVASTATIN
     Dosage: UNK
     Route: 065
  15. SITAGLIPTIN [Concomitant]
     Active Substance: SITAGLIPTIN
     Indication: Type 2 diabetes mellitus
     Dosage: 24014 INTERNATIONAL UNIT
     Route: 065
  16. SITAGLIPTIN [Concomitant]
     Active Substance: SITAGLIPTIN
     Dosage: 100 MILLIGRAM
     Route: 065
     Dates: start: 200908
  17. EMPAGLIFLOZIN [Concomitant]
     Active Substance: EMPAGLIFLOZIN
     Dosage: 10 MILLIGRAM
     Route: 065
     Dates: start: 201701
  18. EMPAGLIFLOZIN [Concomitant]
     Active Substance: EMPAGLIFLOZIN
     Dosage: 60 INTERNATIONAL UNIT
     Route: 065
  19. METFORMIN [Concomitant]
     Active Substance: METFORMIN HYDROCHLORIDE
     Dosage: UNK, 1000-0-1500 MG
     Route: 065
     Dates: start: 200808
  20. GLYBURIDE\METFORMIN [Concomitant]
     Active Substance: GLYBURIDE\METFORMIN
     Indication: Type 2 diabetes mellitus
     Dosage: 400 / 2.5 MG 1 TBL MORNING
     Route: 065
     Dates: start: 200312
  21. GLYBURIDE\METFORMIN [Concomitant]
     Active Substance: GLYBURIDE\METFORMIN
     Dosage: 500 / 2.5 MG AT THE DOSE OF 1-0-1/2 TBL TO 2-1-1 TBL
     Route: 065

REACTIONS (4)
  - Bile duct stone [Unknown]
  - Diabetic neuropathy [Unknown]
  - Diabetic retinopathy [Unknown]
  - Balanoposthitis [Unknown]
